FAERS Safety Report 8477896-X (Version None)
Quarter: 2012Q2

REPORT INFORMATION
  Report Type: 
  Country: None (occurrence: None)
  Receive Date: 20120629
  Receipt Date: 20120620
  Transmission Date: 20120825
  Serious: Yes (Hospitalization)
  Sender: FDA-Public Use
  Company Number: US-BAYER-2012-062530

PATIENT
  Age: 21 Year
  Sex: Female

DRUGS (6)
  1. YAZ [Suspect]
     Indication: CONTRACEPTION
     Dosage: UNK
  2. YAZ [Suspect]
     Indication: DYSMENORRHOEA
  3. YASMIN [Suspect]
     Dosage: DAILY
     Route: 048
  4. YAZ [Suspect]
     Indication: DYSFUNCTIONAL UTERINE BLEEDING
  5. ACYCLOVIR [Concomitant]
     Indication: HERPES SIMPLEX
     Dosage: UNK
  6. ZYRTEC [Concomitant]
     Indication: HYPERSENSITIVITY
     Dosage: UNK UNK, PRN

REACTIONS (2)
  - PELVIC VENOUS THROMBOSIS [None]
  - PULMONARY EMBOLISM [None]
